FAERS Safety Report 5011560-4 (Version None)
Quarter: 2006Q2

REPORT INFORMATION
  Report Type: 
  Country: None (occurrence: None)
  Receive Date: 20060524
  Receipt Date: 20060511
  Transmission Date: 20061013
  Serious: Yes (Other)
  Sender: FDA-Public Use
  Company Number: 2006-04-1648

PATIENT
  Age: 26 Year
  Sex: Male

DRUGS (2)
  1. CELESTAMINE TAB [Suspect]
     Indication: ACUTE SINUSITIS
     Dosage: 3 TAB ORAL
     Route: 048
     Dates: start: 20060119, end: 20060126
  2. CELESTAMINE TAB [Suspect]
     Indication: RHINITIS ALLERGIC
     Dosage: 3 TAB ORAL
     Route: 048
     Dates: start: 20060119, end: 20060126

REACTIONS (2)
  - BASEDOW'S DISEASE [None]
  - EXOPHTHALMOS [None]
